FAERS Safety Report 5288391-3 (Version None)
Quarter: 2007Q2

REPORT INFORMATION
  Report Type: 
  Country: None (occurrence: None)
  Receive Date: 20070405
  Receipt Date: 20070330
  Transmission Date: 20071010
  Serious: Yes (Death)
  Sender: FDA-Public Use
  Company Number: 2006UW21152

PATIENT
  Age: 43 Year
  Sex: Male
  Weight: 72.7 kg

DRUGS (3)
  1. SEROQUEL [Suspect]
     Indication: SCHIZOPHRENIA
     Dosage: 100 - 200 MG
     Route: 048
     Dates: start: 20030912, end: 20050720
  2. SEROQUEL [Suspect]
     Indication: BIPOLAR DISORDER
     Dosage: 100 - 200 MG
     Route: 048
     Dates: start: 20030912, end: 20050720
  3. SERTRALINE [Suspect]
     Indication: MENTAL DISORDER
     Dates: start: 20040401, end: 20040901

REACTIONS (2)
  - DEATH [None]
  - DIABETES MELLITUS NON-INSULIN-DEPENDENT [None]
